FAERS Safety Report 9011804 (Version 1)
Quarter: 2013Q1

REPORT INFORMATION
  Report Type: Spontaneous
  Country: US (occurrence: US)
  Receive Date: 20130113
  Receipt Date: 20130113
  Transmission Date: 20140127
  Serious: Yes (Hospitalization)
  Sender: FDA-Public Use
  Company Number: US-009507513-1301USA004160

PATIENT
  Sex: Female

DRUGS (12)
  1. ALBUTEROL SULFATE [Suspect]
     Dosage: 0.083 %, UNK
  2. PROAIR HFA [Suspect]
     Dosage: 18 MG, UNKNOWN
  3. PREDNISONE [Suspect]
     Dosage: 20 MG, UNKNOWN
  4. ADVAIR [Suspect]
  5. SINGULAIR [Suspect]
     Indication: ASTHMA
     Dosage: 25 MG, UNKNOWN
  6. SINGULAIR [Suspect]
     Indication: PRODUCT USED FOR UNKNOWN INDICATION
  7. XOLAIR [Suspect]
  8. CORTICOSTEROIDS (UNSPECIFIED) [Suspect]
  9. PROMETHAZINE HYDROCHLORIDE AND CODEINE PHOSPHATE [Suspect]
  10. SODIUM CHLORIDE [Suspect]
  11. OXYGEN [Suspect]
     Dosage: 2 L, UNKNOWN
  12. IPRATROPIUM BROMIDE [Suspect]
     Dosage: 2 %, UNKNOWN

REACTIONS (4)
  - Oxygen saturation decreased [Unknown]
  - Overdose [Unknown]
  - Drug ineffective [Unknown]
  - Blood potassium decreased [Unknown]
